FAERS Safety Report 6603136-X (Version None)
Quarter: 2010Q1

REPORT INFORMATION
  Report Type: 
  Country: None (occurrence: None)
  Receive Date: 20100226
  Receipt Date: 20100217
  Transmission Date: 20100710
  Serious: Yes (Hospitalization)
  Sender: FDA-Public Use
  Company Number: FR-PFIZER INC-2010020409

PATIENT
  Age: 67 Year
  Sex: Male

DRUGS (7)
  1. TAHOR [Suspect]
     Indication: HYPERCHOLESTEROLAEMIA
     Dosage: UNK
     Route: 048
  2. CLAMOXYL [Suspect]
     Indication: BRONCHITIS
     Dosage: 1 G (2 CAPSULES) ONCE AT 10PM
     Route: 048
     Dates: start: 20090727, end: 20090727
  3. PREVISCAN [Suspect]
     Indication: HYPERTENSION
     Dosage: 20 MG, UNK
     Route: 048
  4. PREVISCAN [Suspect]
     Indication: ATRIAL FIBRILLATION
  5. ATENOLOL [Suspect]
     Dosage: UNK
     Route: 048
  6. AMOXICILLIN [Concomitant]
     Dosage: UNK
     Dates: start: 20090601
  7. AMOXICILLIN [Concomitant]
     Dosage: 1 G, 1X/DAY
     Dates: start: 20090727, end: 20090727

REACTIONS (1)
  - RECTAL HAEMORRHAGE [None]
